FAERS Safety Report 4693003-3 (Version None)
Quarter: 2005Q2

REPORT INFORMATION
  Report Type: 
  Country: None (occurrence: None)
  Receive Date: 20050615
  Receipt Date: 20050601
  Transmission Date: 20051028
  Serious: Yes (Other)
  Sender: FDA-Public Use
  Company Number: USA050699499

PATIENT
  Sex: Female

DRUGS (1)
  1. FORTEO [Suspect]
     Dates: start: 20050501

REACTIONS (3)
  - HYPERTENSION [None]
  - MUSCLE SPASMS [None]
  - UNEVALUABLE EVENT [None]
